FAERS Safety Report 20488901 (Version 1)
Quarter: 2022Q1

REPORT INFORMATION
  Report Type: Spontaneous
  Country: US (occurrence: None)
  Receive Date: 20220217
  Receipt Date: 20220217
  Transmission Date: 20220423
  Serious: No
  Sender: FDA-Public Use
  Company Number: None

PATIENT
  Age: 91 Year
  Sex: Male

DRUGS (1)
  1. CAPECITABINE [Suspect]
     Active Substance: CAPECITABINE
     Dosage: 1500MG BID ORAL?
     Route: 048

REACTIONS (3)
  - Fall [None]
  - Haemoglobin decreased [None]
  - Pneumonia [None]

NARRATIVE: CASE EVENT DATE: 20211202
